FAERS Safety Report 18419233 (Version 1)
Quarter: 2020Q4

REPORT INFORMATION
  Report Type: Spontaneous
  Country: US (occurrence: US)
  Receive Date: 20201023
  Receipt Date: 20201023
  Transmission Date: 20210114
  Serious: No
  Sender: FDA-Public Use
  Company Number: US-MYLANLABS-2020M1087403

PATIENT
  Sex: Male

DRUGS (1)
  1. HALOPERIDOL. [Suspect]
     Active Substance: HALOPERIDOL
     Indication: INSOMNIA
     Dosage: UNK

REACTIONS (1)
  - Off label use [Unknown]
